FAERS Safety Report 8934611 (Version 2)
Quarter: 2012Q4

REPORT INFORMATION
  Report Type: Report from Study
  Country: RU (occurrence: RU)
  Receive Date: 20121129
  Receipt Date: 20121204
  Transmission Date: 20130627
  Serious: Yes (Hospitalization)
  Sender: FDA-Public Use
  Company Number: RU-SANOFI-AVENTIS-2012SA084409

PATIENT
  Age: 84 Year
  Sex: Male
  Weight: 104.8 kg

DRUGS (10)
  1. DOCETAXEL [Suspect]
     Indication: PROSTATE CANCER
     Route: 042
     Dates: start: 20111215, end: 20111215
  2. DOCETAXEL [Suspect]
     Indication: PROSTATE CANCER
     Route: 042
     Dates: start: 20121010, end: 20121010
  3. PREDNISOLONE [Suspect]
     Indication: PROSTATE CANCER
     Route: 048
     Dates: start: 20111215, end: 20121010
  4. ZOMETA [Concomitant]
     Route: 041
     Dates: start: 20091119
  5. PLAVIX [Concomitant]
     Dates: start: 2012
  6. TORASEMIDE [Concomitant]
     Dates: start: 2012
  7. SPIRONOLACTONE [Concomitant]
     Dates: start: 2012
  8. ISOSORBIDE MONONITRATE [Concomitant]
     Dates: start: 2012
  9. BETALOC ZOK ^ASTRA^ [Concomitant]
     Dates: start: 2012
  10. OMEPRAZOLE [Concomitant]
     Dates: start: 2012

REACTIONS (2)
  - Coronary artery disease [Recovered/Resolved]
  - Epistaxis [Recovered/Resolved]
